FAERS Safety Report 19063218 (Version 1)
Quarter: 2021Q1

REPORT INFORMATION
  Report Type: Spontaneous
  Country: US (occurrence: US)
  Receive Date: 20210326
  Receipt Date: 20210326
  Transmission Date: 20210420
  Serious: No
  Sender: FDA-Public Use
  Company Number: US-BAYER-2021-108098

PATIENT
  Age: 70 Year
  Sex: Female

DRUGS (4)
  1. SUPREP BOWEL PREP [Concomitant]
     Active Substance: MAGNESIUM SULFATE\POTASSIUM SULFATE\SODIUM SULFATE
     Indication: COLONOSCOPY
     Dosage: 1X6OZ
     Route: 048
     Dates: start: 20210222, end: 20210222
  2. ASCORBIC ACID. [Concomitant]
     Active Substance: ASCORBIC ACID
  3. ALBUTEROL SULFATE. [Concomitant]
     Active Substance: ALBUTEROL SULFATE
     Dosage: UNK
     Route: 048
  4. MIRALAX [Suspect]
     Active Substance: POLYETHYLENE GLYCOL 3350
     Indication: COLONOSCOPY
     Dosage: 1 DF 1 X 6OZ. BOTTLE
     Route: 048
     Dates: start: 202102, end: 202102

REACTIONS (4)
  - Off label use [None]
  - Somnolence [Recovered/Resolved]
  - Product use in unapproved indication [None]
  - Vomiting [Recovered/Resolved]

NARRATIVE: CASE EVENT DATE: 202102
